FAERS Safety Report 17367713 (Version 2)
Quarter: 2020Q1

REPORT INFORMATION
  Report Type: Not Available
  Country: US (occurrence: US)
  Receive Date: 20200204
  Receipt Date: 20200317
  Transmission Date: 20200409
  Serious: Yes (Hospitalization)
  Sender: FDA-Public Use
  Company Number: US-NEUROCRINE BIOSCIENCES INC.-2020NBI00242

PATIENT
  Sex: Female

DRUGS (5)
  1. TRAZODONE [Concomitant]
     Active Substance: TRAZODONE HYDROCHLORIDE
     Route: 048
  2. PROVENTIL [Concomitant]
     Active Substance: ALBUTEROL
     Indication: CHRONIC OBSTRUCTIVE PULMONARY DISEASE
  3. INGREZZA [Suspect]
     Active Substance: VALBENAZINE
     Indication: TARDIVE DYSKINESIA
     Route: 048
     Dates: start: 20190801
  4. CLONAZEPAM. [Concomitant]
     Active Substance: CLONAZEPAM
     Indication: DYSKINESIA
     Route: 048
  5. DEPAKOTE [Concomitant]
     Active Substance: DIVALPROEX SODIUM
     Route: 048
     Dates: start: 20190924

REACTIONS (5)
  - Muscle tightness [Not Recovered/Not Resolved]
  - Mania [Unknown]
  - Balance disorder [Not Recovered/Not Resolved]
  - Mobility decreased [Not Recovered/Not Resolved]
  - Drug ineffective [Unknown]
